FAERS Safety Report 10642887 (Version 4)
Quarter: 2015Q2

REPORT INFORMATION
  Report Type: Spontaneous
  Country: US (occurrence: US)
  Receive Date: 20141210
  Receipt Date: 20150522
  Transmission Date: 20150821
  Serious: No
  Sender: FDA-Public Use
  Company Number: US-PFIZER INC-2014339094

PATIENT
  Sex: Female

DRUGS (1)
  1. LYRICA [Suspect]
     Active Substance: PREGABALIN
     Dosage: UNK

REACTIONS (6)
  - Paraesthesia [Unknown]
  - Middle insomnia [Unknown]
  - Blood pressure abnormal [Unknown]
  - Depression [Unknown]
  - Pain in extremity [Unknown]
  - Insomnia [Unknown]
